FAERS Safety Report 4280150-3 (Version None)
Quarter: 2004Q1

REPORT INFORMATION
  Report Type: 
  Country: None (occurrence: None)
  Receive Date: 20040128
  Receipt Date: 19991112
  Transmission Date: 20041129
  Serious: Yes (Death, Life-Threatening, Hospitalization, Other)
  Sender: FDA-Public Use
  Company Number: US-GLAXOSMITHKLINE-A0175206A

PATIENT
  Age: 46 Year
  Sex: Male
  Weight: 91.8 kg

DRUGS (32)
  1. PURINETHOL [Suspect]
     Indication: CROHN'S DISEASE
     Route: 048
     Dates: start: 19970522, end: 19970604
  2. AVANDIA [Suspect]
     Indication: DIABETES MELLITUS NON-INSULIN-DEPENDENT
     Dosage: 4MG PER DAY
     Route: 048
     Dates: start: 19990630, end: 19990101
  3. REZULIN [Suspect]
     Indication: DIABETES MELLITUS NON-INSULIN-DEPENDENT
     Route: 065
     Dates: start: 19970409, end: 19970508
  4. METHOTREXATE [Suspect]
     Indication: CROHN'S DISEASE
     Dosage: 25MG WEEKLY
     Route: 030
     Dates: start: 19970605
  5. METOPROLOL [Suspect]
     Indication: CROHN'S DISEASE
     Route: 065
     Dates: end: 19990630
  6. NITROGLYCERIN [Suspect]
     Indication: CHEST PAIN
     Route: 060
     Dates: start: 19971201, end: 19971201
  7. PREDNISONE [Suspect]
     Indication: CROHN'S DISEASE
     Route: 065
     Dates: end: 19990728
  8. ATACAND [Suspect]
     Indication: HYPERTENSION
     Dosage: 16MG IN THE MORNING
     Route: 048
     Dates: start: 19990719, end: 19990725
  9. HYDROCORTISONE [Concomitant]
     Route: 042
  10. PERCOCET [Concomitant]
     Dates: start: 19970530, end: 19990101
  11. LIPITOR [Concomitant]
     Dosage: 80MG PER DAY
     Route: 048
     Dates: start: 19980520, end: 19990125
  12. HUMULIN N [Concomitant]
     Dates: start: 19970916
  13. PRANDIN [Concomitant]
     Dates: start: 19980520, end: 19990725
  14. XANAX [Concomitant]
  15. AMITRIPTYLINE [Concomitant]
  16. GLUCOPHAGE [Concomitant]
     Dates: end: 19970409
  17. VIAGRA [Concomitant]
     Dates: start: 19980520
  18. PAXIL [Concomitant]
     Dates: end: 19990101
  19. ASACOL [Concomitant]
     Dates: start: 19970605, end: 19980818
  20. FLAGYL [Concomitant]
     Dates: start: 19970520, end: 19990701
  21. IRON [Concomitant]
     Dates: end: 19970908
  22. CIPROFLOXACIN [Concomitant]
     Dates: end: 19990101
  23. ROXICET [Concomitant]
     Dates: start: 19970520, end: 19990101
  24. TYLENOL [Concomitant]
     Dates: start: 19970520, end: 19990725
  25. HUMULIN R [Concomitant]
     Dates: start: 19970916
  26. INSULIN [Concomitant]
  27. MORPHINE SULFATE [Concomitant]
     Dates: start: 19970601, end: 19970601
  28. SOLU-CORTEF [Concomitant]
     Dates: start: 19980107, end: 19980109
  29. PHENERGAN HCL [Concomitant]
     Dates: start: 19980107, end: 19980109
  30. RELAFEN [Concomitant]
     Dates: start: 19980109
  31. PEPCID [Concomitant]
     Dates: start: 19980109
  32. METHOTREXATE [Concomitant]
     Dosage: 7.5MG PER DAY

REACTIONS (74)
  - ABDOMINAL PAIN [None]
  - ACIDOSIS [None]
  - ANGINA PECTORIS [None]
  - ANXIETY [None]
  - ARRHYTHMIA [None]
  - ARTERIAL STENOSIS [None]
  - ASCITES [None]
  - ASPARTATE AMINOTRANSFERASE INCREASED [None]
  - ASTHENIA [None]
  - ATHEROSCLEROSIS [None]
  - AZOTAEMIA [None]
  - BLOOD ALDOSTERONE INCREASED [None]
  - BLOOD ALKALINE PHOSPHATASE INCREASED [None]
  - BLOOD AMYLASE INCREASED [None]
  - BLOOD BILIRUBIN INCREASED [None]
  - BLOOD CORTICOTROPHIN INCREASED [None]
  - BLOOD GLUCOSE INCREASED [None]
  - BLOOD TRIGLYCERIDES INCREASED [None]
  - BLOOD URIC ACID DECREASED [None]
  - BURSITIS [None]
  - CARDIAC FAILURE CONGESTIVE [None]
  - CARDIO-RESPIRATORY ARREST [None]
  - CARDIOMEGALY [None]
  - CHEST PAIN [None]
  - COAGULOPATHY [None]
  - DIABETES MELLITUS INADEQUATE CONTROL [None]
  - DIZZINESS [None]
  - DYSPNOEA [None]
  - ELECTROLYTE IMBALANCE [None]
  - FATIGUE [None]
  - FISTULA [None]
  - HAEMORRHAGE [None]
  - HEADACHE [None]
  - HEART RATE DECREASED [None]
  - HEPATIC CIRRHOSIS [None]
  - HEPATIC FAILURE [None]
  - HEPATIC FIBROSIS [None]
  - HEPATITIS [None]
  - HYPERKALAEMIA [None]
  - HYPOAESTHESIA [None]
  - HYPOGLYCAEMIA [None]
  - HYPONATRAEMIA [None]
  - ILL-DEFINED DISORDER [None]
  - INTERMITTENT CLAUDICATION [None]
  - ISCHAEMIA [None]
  - JAUNDICE [None]
  - JOINT SWELLING [None]
  - LIVER FUNCTION TEST ABNORMAL [None]
  - MYOCARDIAL INFARCTION [None]
  - NAUSEA [None]
  - NEUROPATHY PERIPHERAL [None]
  - OEDEMA [None]
  - ORTHOSTATIC HYPOTENSION [None]
  - PANCREATITIS [None]
  - PARAESTHESIA [None]
  - PERIPHERAL COLDNESS [None]
  - PERITONEAL ADHESIONS [None]
  - PLATELET COUNT DECREASED [None]
  - PLEURAL EFFUSION [None]
  - POLYDIPSIA [None]
  - POLYP [None]
  - POLYURIA [None]
  - PROTHROMBIN TIME PROLONGED [None]
  - PULMONARY CONGESTION [None]
  - PURULENT DISCHARGE [None]
  - PYREXIA [None]
  - RECTAL HAEMORRHAGE [None]
  - RED BLOOD CELL SEDIMENTATION RATE INCREASED [None]
  - RENAL FAILURE [None]
  - SEPSIS [None]
  - SINUS TACHYCARDIA [None]
  - THYROXINE INCREASED [None]
  - VENTRICULAR TACHYCARDIA [None]
  - WEIGHT DECREASED [None]
